FAERS Safety Report 16738975 (Version 1)
Quarter: 2019Q3

REPORT INFORMATION
  Report Type: Report from Study
  Country: US (occurrence: US)
  Receive Date: 20190826
  Receipt Date: 20190826
  Transmission Date: 20191005
  Serious: Yes (Other)
  Sender: FDA-Public Use
  Company Number: US-ROCHE-2258486

PATIENT

DRUGS (1)
  1. RITUXIMAB. [Suspect]
     Active Substance: RITUXIMAB
     Indication: B-CELL LYMPHOMA
     Dosage: EIGHT DOSES IN 6 MONTHS
     Route: 042

REACTIONS (6)
  - Nasal congestion [Unknown]
  - Fatigue [Unknown]
  - Cough [Unknown]
  - Colitis [Unknown]
  - Diarrhoea [Unknown]
  - Rash [Unknown]
